FAERS Safety Report 5223992-X (Version None)
Quarter: 2007Q1

REPORT INFORMATION
  Report Type: 
  Country: None (occurrence: None)
  Receive Date: 20070130
  Receipt Date: 20070123
  Transmission Date: 20070707
  Serious: Yes (Hospitalization)
  Sender: FDA-Public Use
  Company Number: 6834

PATIENT
  Age: 65 Year
  Sex: Female

DRUGS (4)
  1. NOGITECAN HYDROCHLORIDE [Suspect]
     Dosage: .9MG PER DAY
     Route: 065
     Dates: start: 20061013, end: 20061208
  2. AMRUBICIN HYDROCHLORIDE [Suspect]
     Route: 050
     Dates: start: 20061013, end: 20061208
  3. DEXAMETHASONE SODIUM PHOSPHATE [Concomitant]
     Dates: start: 20061013, end: 20061208
  4. NARTOGRASTIM [Concomitant]
     Indication: NEUTROPHIL COUNT DECREASED
     Dosage: 50UG PER DAY
     Route: 058
     Dates: start: 20061206, end: 20061221

REACTIONS (3)
  - INTERSTITIAL LUNG DISEASE [None]
  - OXYGEN SATURATION DECREASED [None]
  - PYREXIA [None]
